FAERS Safety Report 18192376 (Version 2)
Quarter: 2020Q4

REPORT INFORMATION
  Report Type: Report from Study
  Country: GB (occurrence: GB)
  Receive Date: 20200825
  Receipt Date: 20201012
  Transmission Date: 20210113
  Serious: Yes (Death, Other)
  Sender: FDA-Public Use
  Company Number: GB-PHARMALEX A.R.C.-2088998

PATIENT
  Sex: Male

DRUGS (9)
  1. ALLOPURINOL. [Concomitant]
     Active Substance: ALLOPURINOL
  2. GLICLAZIDE [Concomitant]
     Active Substance: GLICLAZIDE
  3. SPIRONOLACTONE. [Concomitant]
     Active Substance: SPIRONOLACTONE
  4. IBRUTINIB [Concomitant]
     Active Substance: IBRUTINIB
  5. DIGOXIN. [Concomitant]
     Active Substance: DIGOXIN
  6. BISOPROLOL. [Concomitant]
     Active Substance: BISOPROLOL FUMARATE
  7. LUMOXITI [Suspect]
     Active Substance: MOXETUMOMAB PASUDOTOX-TDFK
     Route: 042
  8. LANSOPRAZOLE. [Concomitant]
     Active Substance: LANSOPRAZOLE
  9. ELTROMBOPAG [Concomitant]
     Active Substance: ELTROMBOPAG

REACTIONS (5)
  - Hairy cell leukaemia [Fatal]
  - Oedema peripheral [Unknown]
  - Ascites [Not Recovered/Not Resolved]
  - Capillary leak syndrome [Unknown]
  - Disease progression [Fatal]
